FAERS Safety Report 7974581 (Version 3)
Quarter: 2013Q1

REPORT INFORMATION
  Report Type: Spontaneous
  Country: US (occurrence: US)
  Receive Date: 20110606
  Receipt Date: 20130111
  Transmission Date: 20140127
  Serious: Yes (Hospitalization)
  Sender: FDA-Public Use
  Company Number: US-BIOGENIDEC-2011BI019833

PATIENT
  Age: 58 Year
  Sex: Male

DRUGS (2)
  1. AVONEX [Suspect]
     Indication: MULTIPLE SCLEROSIS
     Route: 030
     Dates: start: 20010705, end: 20041101
  2. AVONEX [Suspect]
     Indication: MULTIPLE SCLEROSIS
     Route: 030
     Dates: start: 20071118

REACTIONS (12)
  - Upper respiratory tract infection [Recovered/Resolved]
  - Diabetic foot [Unknown]
  - Toe amputation [Recovered/Resolved]
  - Renal failure chronic [Recovered/Resolved]
  - Cellulitis [Unknown]
  - Diabetes mellitus [Unknown]
  - Venous occlusion [Not Recovered/Not Resolved]
  - Gait disturbance [Unknown]
  - Chronic obstructive pulmonary disease [Not Recovered/Not Resolved]
  - Osteomyelitis [Not Recovered/Not Resolved]
  - Drug dose omission [Not Recovered/Not Resolved]
  - Influenza like illness [Not Recovered/Not Resolved]
